FAERS Safety Report 7093843-X (Version None)
Quarter: 2010Q4

REPORT INFORMATION
  Report Type: 
  Country: None (occurrence: None)
  Receive Date: 20101110
  Receipt Date: 20101104
  Transmission Date: 20110411
  Serious: Yes (Death)
  Sender: FDA-Public Use
  Company Number: A0884907A

PATIENT
  Age: 62 Year
  Sex: Male

DRUGS (10)
  1. PROMACTA [Suspect]
     Indication: IDIOPATHIC THROMBOCYTOPENIC PURPURA
     Dosage: 50MG PER DAY
     Route: 048
     Dates: start: 20100216, end: 20100328
  2. CORTICOSTEROIDS [Concomitant]
  3. ALPHAGAN [Concomitant]
  4. XALATAN [Concomitant]
  5. PREVACID [Concomitant]
  6. SYNTHROID [Concomitant]
  7. AMBIEN CR [Concomitant]
  8. NORVASC [Concomitant]
  9. COUMADIN [Concomitant]
  10. PERCOCET [Concomitant]

REACTIONS (3)
  - IDIOPATHIC THROMBOCYTOPENIC PURPURA [None]
  - PULMONARY HAEMORRHAGE [None]
  - RESPIRATORY FAILURE [None]
